FAERS Safety Report 14379537 (Version 1)
Quarter: 2018Q1

REPORT INFORMATION
  Report Type: Spontaneous
  Country: FR (occurrence: FR)
  Receive Date: 20180112
  Receipt Date: 20180112
  Transmission Date: 20180509
  Serious: Yes (Disabling, Other)
  Sender: FDA-Public Use
  Company Number: FR-CIPLA LTD.-2017FR31123

PATIENT

DRUGS (2)
  1. LEVOFLOXACIN. [Suspect]
     Active Substance: LEVOFLOXACIN
     Indication: SINUSITIS
     Dosage: 2 DF, UNK
     Route: 048
     Dates: start: 20110617, end: 20110617
  2. SOLUPRED//PREDNISOLONE METASULFOBENZOATE SODIUM [Suspect]
     Active Substance: PREDNISOLONE SODIUM METAZOATE
     Indication: SINUSITIS
     Dosage: 20 MG, UNK
     Route: 048
     Dates: start: 201206

REACTIONS (12)
  - Periarthritis [Not Recovered/Not Resolved]
  - Pain in extremity [Not Recovered/Not Resolved]
  - Complex regional pain syndrome [Not Recovered/Not Resolved]
  - Pericarditis [Recovered/Resolved]
  - Sciatica [Not Recovered/Not Resolved]
  - Myoclonus [Recovered/Resolved]
  - Paraesthesia [Not Recovered/Not Resolved]
  - Asthenia [Not Recovered/Not Resolved]
  - Intervertebral disc protrusion [Not Recovered/Not Resolved]
  - Tendon disorder [Not Recovered/Not Resolved]
  - Arthralgia [Not Recovered/Not Resolved]
  - Muscle rupture [Not Recovered/Not Resolved]

NARRATIVE: CASE EVENT DATE: 20110618
